FAERS Safety Report 21128140 (Version 2)
Quarter: 2022Q3

REPORT INFORMATION
  Report Type: Report from Study
  Country: US (occurrence: US)
  Receive Date: 20220725
  Receipt Date: 20220729
  Transmission Date: 20221027
  Serious: Yes (Other)
  Sender: FDA-Public Use
  Company Number: US-TEVA-2022-US-2057620

PATIENT
  Age: 29 Year
  Sex: Female

DRUGS (1)
  1. CLARAVIS [Suspect]
     Active Substance: ISOTRETINOIN
     Indication: Product used for unknown indication
     Dosage: 80 MILLIGRAM DAILY;
     Route: 065
     Dates: start: 20211027, end: 20220615

REACTIONS (7)
  - Suicidal ideation [Recovered/Resolved]
  - Depression [Recovered/Resolved]
  - Vaginal discharge [Not Recovered/Not Resolved]
  - Erythema [Recovered/Resolved]
  - Dry skin [Recovered/Resolved]
  - Vaginal haemorrhage [Recovered/Resolved]
  - Pregnancy test false positive [Unknown]

NARRATIVE: CASE EVENT DATE: 20220615
